FAERS Safety Report 9486647 (Version 2)
Quarter: 2013Q3

REPORT INFORMATION
  Report Type: Report from Study
  Country: SE (occurrence: SE)
  Receive Date: 20130829
  Receipt Date: 20130829
  Transmission Date: 20140515
  Serious: Yes (Death, Life-Threatening)
  Sender: FDA-Public Use
  Company Number: SE-ABBOTT-13P-150-1043633-00

PATIENT
  Age: 80 Year
  Sex: Female

DRUGS (1)
  1. HUMIRA [Suspect]
     Indication: RHEUMATOID ARTHRITIS
     Route: 058
     Dates: start: 20091216, end: 20110703

REACTIONS (12)
  - Genital neoplasm malignant female [Fatal]
  - Ovarian cancer metastatic [Unknown]
  - Oesophagitis [Unknown]
  - Lung infiltration [Unknown]
  - Pneumonia [Unknown]
  - General physical health deterioration [Unknown]
  - Aphagia [Unknown]
  - Unresponsive to stimuli [Unknown]
  - Wheezing [Unknown]
  - Carbohydrate antigen 125 increased [Unknown]
  - Sensation of foreign body [Unknown]
  - Vomiting [Unknown]
